FAERS Safety Report 20198438 (Version 2)
Quarter: 2021Q4

REPORT INFORMATION
  Report Type: Spontaneous
  Country: US (occurrence: US)
  Receive Date: 20211217
  Receipt Date: 20211217
  Transmission Date: 20220303
  Serious: Yes (Hospitalization)
  Sender: FDA-Public Use
  Company Number: US-CELGENE-USA-20211203776

PATIENT
  Age: 88 Year
  Sex: Male
  Weight: 89.438 kg

DRUGS (10)
  1. POMALYST [Suspect]
     Active Substance: POMALIDOMIDE
     Indication: Plasma cell myeloma
     Dosage: 4 MILLIGRAM
     Route: 048
     Dates: start: 20210615
  2. CHOLESTYRAMINE [Concomitant]
     Active Substance: CHOLESTYRAMINE
     Indication: Product used for unknown indication
     Route: 065
  3. SYSTANE (HYPROMELLOSE 2910 (4000 MPA.S)) [Concomitant]
     Active Substance: HYPROMELLOSE 2910 (4000 MPA.S)
     Indication: Product used for unknown indication
     Route: 065
  4. OLIVE OIL [Concomitant]
     Active Substance: OLIVE OIL
     Indication: Product used for unknown indication
     Route: 065
  5. MUCINEX [Concomitant]
     Active Substance: GUAIFENESIN
     Indication: Product used for unknown indication
     Route: 065
  6. ALOE VERA LEAF [Concomitant]
     Active Substance: ALOE VERA LEAF
     Indication: Product used for unknown indication
     Route: 065
  7. AVASTIN [Concomitant]
     Active Substance: BEVACIZUMAB
     Indication: Product used for unknown indication
     Route: 065
  8. BONIVA [Concomitant]
     Active Substance: IBANDRONATE SODIUM
     Indication: Product used for unknown indication
     Route: 065
  9. MAGNESIUM [Concomitant]
     Active Substance: MAGNESIUM
     Indication: Product used for unknown indication
     Dosage: 100
     Route: 065
  10. PROBIOTICS NOS [Concomitant]
     Active Substance: PROBIOTICS NOS
     Indication: Product used for unknown indication
     Route: 065

REACTIONS (2)
  - Cardiac failure congestive [Recovering/Resolving]
  - Fluid retention [Recovering/Resolving]

NARRATIVE: CASE EVENT DATE: 20211201
